FAERS Safety Report 23142309 (Version 5)
Quarter: 2024Q4

REPORT INFORMATION
  Report Type: Spontaneous
  Country: ES (occurrence: ES)
  Receive Date: 20231103
  Receipt Date: 20241016
  Transmission Date: 20250114
  Serious: Yes (Other)
  Sender: ASTELLAS
  Company Number: ES-ASTELLAS-2023US032894

PATIENT
  Sex: Male

DRUGS (4)
  1. XTANDI [Suspect]
     Active Substance: ENZALUTAMIDE
     Indication: Product used for unknown indication
     Dosage: 4 DF (4 TABLETS, 4 X 40), ONCE DAILY
     Route: 065
     Dates: start: 20230503
  2. XTANDI [Suspect]
     Active Substance: ENZALUTAMIDE
     Dosage: 2 DF (2 X 40), ONCE DAILY, 2 TABLETS
     Route: 065
     Dates: start: 20240118
  3. ELIGARD [Concomitant]
     Active Substance: LEUPROLIDE ACETATE
     Indication: Prostate cancer
     Dosage: UNK UNK, TRIMESTRAL
     Route: 065
  4. ELIGARD [Concomitant]
     Active Substance: LEUPROLIDE ACETATE
     Dosage: UNK UNK, EVERY 6 MONTHS
     Route: 065

REACTIONS (7)
  - Arrhythmia [Unknown]
  - Dizziness exertional [Recovering/Resolving]
  - Pain in extremity [Recovered/Resolved]
  - Dyspnoea [Unknown]
  - Gait disturbance [Unknown]
  - Fatigue [Unknown]
  - Depression [Unknown]

NARRATIVE: CASE EVENT DATE: 20230601
